FAERS Safety Report 9009482 (Version 3)
Quarter: 2013Q1

REPORT INFORMATION
  Report Type: Spontaneous
  Country: US (occurrence: US)
  Receive Date: 20130110
  Receipt Date: 20130215
  Transmission Date: 20140127
  Serious: Yes (Hospitalization)
  Sender: FDA-Public Use
  Company Number: US-VIROPHARMA INCORPORATED-20130102CINRY3797

PATIENT
  Age: 60 None
  Sex: Female

DRUGS (1)
  1. CINRYZE (C1 ESTERASE INHIBITOR (HUMAN)) [Suspect]
     Indication: HEREDITARY ANGIOEDEMA

REACTIONS (6)
  - Device occlusion [Recovered/Resolved]
  - Central venous catheterisation [Recovered/Resolved]
  - Hereditary angioedema [Recovered/Resolved]
  - Product reconstitution issue [Recovered/Resolved]
  - Drug dose omission [Recovered/Resolved]
  - Medical device complication [Not Recovered/Not Resolved]
